FAERS Safety Report 4791316-8 (Version None)
Quarter: 2005Q4

REPORT INFORMATION
  Report Type: 
  Country: None (occurrence: None)
  Receive Date: 20051007
  Receipt Date: 20050927
  Transmission Date: 20060501
  Serious: Yes (Death, Hospitalization)
  Sender: FDA-Public Use
  Company Number: ES-JNJFOC-20050901315

PATIENT
  Age: 77 Year
  Sex: Male

DRUGS (10)
  1. REMICADE [Suspect]
     Indication: CROHN'S DISEASE
     Dosage: 5MG/KG
     Route: 042
  2. IMUREL [Concomitant]
     Route: 065
  3. DEZACOR [Concomitant]
     Route: 065
  4. PENTASA [Concomitant]
     Route: 065
  5. RANITIDINE [Concomitant]
     Route: 065
  6. ALDACTONE [Concomitant]
     Route: 065
  7. TEGRETOL [Concomitant]
     Route: 065
  8. CLONAZEPAM [Concomitant]
     Route: 065
  9. VENTOLIN [Concomitant]
     Route: 065
  10. ATROVENT [Concomitant]
     Route: 065

REACTIONS (5)
  - ANAEMIA [None]
  - DEATH [None]
  - GASTRIC CANCER [None]
  - MELAENA [None]
  - PNEUMONIA [None]
